FAERS Safety Report 25666331 (Version 5)
Quarter: 2025Q4

REPORT INFORMATION
  Report Type: Spontaneous
  Country: US (occurrence: US)
  Receive Date: 20250811
  Receipt Date: 20251028
  Transmission Date: 20260117
  Serious: No
  Sender: PFIZER
  Company Number: US-PFIZER INC-202500159790

PATIENT
  Age: 69 Year
  Sex: Female
  Weight: 85.714 kg

DRUGS (2)
  1. DUAVEE [Suspect]
     Active Substance: BAZEDOXIFENE ACETATE\ESTROGENS, CONJUGATED
     Indication: Menopause
     Dosage: 0.45/20MG, 1X/DAY
     Route: 048
     Dates: start: 20250624, end: 202506
  2. SYNTHROID [Concomitant]
     Active Substance: LEVOTHYROXINE SODIUM
     Indication: Hypothyroidism
     Dosage: 0.1 MG, 1X/DAY

REACTIONS (5)
  - Dry eye [Recovered/Resolved]
  - Eye disorder [Recovered/Resolved]
  - Eye irritation [Recovered/Resolved]
  - Lacrimation increased [Recovered/Resolved]
  - Eye pain [Recovered/Resolved]

NARRATIVE: CASE EVENT DATE: 20250601
